FAERS Safety Report 21872598 (Version 3)
Quarter: 2023Q1

REPORT INFORMATION
  Report Type: Report from Study
  Country: US (occurrence: US)
  Receive Date: 20230117
  Receipt Date: 20230126
  Transmission Date: 20230418
  Serious: Yes (Hospitalization, Other)
  Sender: FDA-Public Use
  Company Number: US-GILEAD-2023-0612897

PATIENT
  Sex: Female
  Weight: 63.5 kg

DRUGS (27)
  1. SOFOSBUVIR\VELPATASVIR [Suspect]
     Active Substance: SOFOSBUVIR\VELPATASVIR
     Indication: Hepatitis C
     Dosage: 400-100 MG TABLET ONCE DAILY BY MOUTH
     Route: 048
     Dates: start: 20181026, end: 20190118
  2. ALENDRONATE [Concomitant]
     Active Substance: ALENDRONATE SODIUM
  3. VITAMIN D NOS [Concomitant]
     Active Substance: VITAMIN D NOS
  4. MINERALS\VITAMINS [Concomitant]
     Active Substance: MINERALS\VITAMINS
  5. BIMATOPROST [Concomitant]
     Active Substance: BIMATOPROST
  6. PROGRAF [Concomitant]
     Active Substance: TACROLIMUS
  7. VALGANCICLOVIR [Concomitant]
     Active Substance: VALGANCICLOVIR
  8. DILTIAZEM [Concomitant]
     Active Substance: DILTIAZEM
  9. TINZAPARIN [Concomitant]
     Active Substance: TINZAPARIN
  10. DIGOXIN [Concomitant]
     Active Substance: DIGOXIN
     Dosage: 100 MG, TID
  11. METOPROLOL [Concomitant]
     Active Substance: METOPROLOL
     Dosage: 25 MG, TID
     Route: 065
  12. QUETIAPINE [Concomitant]
     Active Substance: QUETIAPINE
  13. SEPTRA [Concomitant]
     Active Substance: SULFAMETHOXAZOLE\TRIMETHOPRIM
  14. ACETAMINOPHEN [Concomitant]
     Active Substance: ACETAMINOPHEN
  15. CASPOFUNGIN [Concomitant]
     Active Substance: CASPOFUNGIN
  16. ZOPICLONE [Concomitant]
     Active Substance: ZOPICLONE
  17. MAGNESIUM OXIDE [Concomitant]
     Active Substance: MAGNESIUM OXIDE
  18. NYSTATIN [Concomitant]
     Active Substance: NYSTATIN
  19. MYFORTIC [Concomitant]
     Active Substance: MYCOPHENOLATE SODIUM
  20. HYDROCODONE [Concomitant]
     Active Substance: HYDROCODONE
  21. PREDNISONE [Concomitant]
     Active Substance: PREDNISONE
  22. TRIAZOLAM [Concomitant]
     Active Substance: TRIAZOLAM
  23. BISOPROLOL [Concomitant]
     Active Substance: BISOPROLOL
  24. ASPIRIN [Concomitant]
     Active Substance: ASPIRIN
  25. ESTRADIOL [Concomitant]
     Active Substance: ESTRADIOL
  26. LAXADEL [Concomitant]
  27. SENNA LEAF [Concomitant]
     Active Substance: SENNA LEAF

REACTIONS (1)
  - Cardiac failure congestive [Unknown]

NARRATIVE: CASE EVENT DATE: 20190604
